FAERS Safety Report 14566332 (Version 4)
Quarter: 2020Q2

REPORT INFORMATION
  Report Type: Spontaneous
  Country: AT (occurrence: AT)
  Receive Date: 20180223
  Receipt Date: 20200501
  Transmission Date: 20200713
  Serious: Yes (Life-Threatening, Hospitalization, Other)
  Sender: FDA-Public Use
  Company Number: AT-CELGENEUS-AUT-20180200707

PATIENT
  Age: 85 Year
  Sex: Female
  Weight: 66 kg

DRUGS (35)
  1. ULCUSAN [Concomitant]
     Indication: PROPHYLAXIS AGAINST GASTROINTESTINAL ULCER
     Dosage: 40 MILLIGRAM
     Route: 048
     Dates: start: 2017
  2. GLICLAZID [Concomitant]
     Route: 048
     Dates: start: 20180129, end: 20180206
  3. EUTHYROX [Concomitant]
     Active Substance: LEVOTHYROXINE SODIUM
     Indication: HYPOTHYROIDISM
     Dosage: 125 MICROGRAM
     Route: 048
     Dates: start: 2012
  4. LENDORM [Concomitant]
     Active Substance: BROTIZOLAM
     Indication: SLEEP DISORDER
     Dosage: .25 MILLIGRAM
     Route: 048
     Dates: start: 20171012
  5. DIGIMERCK [Concomitant]
     Active Substance: DIGITOXIN
     Indication: ATRIAL FIBRILLATION
     Dosage: .07 MILLIGRAM
     Route: 048
     Dates: start: 2017
  6. VENETOCLAX. [Concomitant]
     Active Substance: VENETOCLAX
     Dosage: 200 MILLIGRAM
     Route: 048
     Dates: start: 20180103, end: 20180123
  7. ELO-MEL [Concomitant]
     Active Substance: CALCIUM CHLORIDE\MAGNESIUM CHLORIDE\POTASSIUM CHLORIDE\SODIUM ACETATE\SODIUM CHLORIDE
     Indication: FLUID REPLACEMENT
  8. TIMOFTAL [Concomitant]
     Indication: PROPHYLAXIS
     Route: 047
     Dates: start: 2017
  9. SIMVASTATIN. [Concomitant]
     Active Substance: SIMVASTATIN
     Indication: HYPERLIPIDAEMIA
     Dosage: 20 MILLIGRAM
     Route: 048
     Dates: start: 2013
  10. JENTADUETO [Concomitant]
     Active Substance: LINAGLIPTIN\METFORMIN HYDROCHLORIDE
     Route: 048
     Dates: start: 20180203, end: 20180206
  11. DILATREND [Concomitant]
     Active Substance: CARVEDILOL
     Indication: HYPERTENSION
     Dosage: 25 MILLIGRAM
     Route: 048
     Dates: start: 2017, end: 20180131
  12. ONDANSETRON [Concomitant]
     Active Substance: ONDANSETRON
     Indication: PROPHYLAXIS OF NAUSEA AND VOMITING
     Route: 048
     Dates: start: 20171101
  13. VENETOCLAX. [Concomitant]
     Active Substance: VENETOCLAX
     Indication: ACUTE MYELOID LEUKAEMIA
     Dosage: 50 MILLIGRAM
     Route: 048
     Dates: start: 20171025, end: 20171025
  14. VENETOCLAX. [Concomitant]
     Active Substance: VENETOCLAX
     Dosage: 100 MILLIGRAM
     Route: 048
     Dates: start: 20171026, end: 20171026
  15. TEBOFORTAN [Concomitant]
     Active Substance: GINKGO
     Indication: DIZZINESS
     Dosage: 80 MILLIGRAM
     Route: 048
     Dates: start: 2016
  16. JENTADUETO [Concomitant]
     Active Substance: LINAGLIPTIN\METFORMIN HYDROCHLORIDE
     Indication: TYPE 2 DIABETES MELLITUS
     Dosage: 5 MILLIGRAM
     Route: 048
     Dates: start: 2013, end: 20180126
  17. VITAMINS WITH MINERALS [Concomitant]
     Active Substance: MINERALS\VITAMINS
     Indication: OSTEOPOROSIS PROPHYLAXIS
     Dosage: 600 MILLIGRAM
     Route: 048
     Dates: start: 2017
  18. NOVALGIN [Concomitant]
     Indication: BACK PAIN
     Route: 048
     Dates: start: 20171121
  19. CLAVAMOX [Concomitant]
     Active Substance: AMOXICILLIN\CLAVULANATE POTASSIUM
     Indication: ANTIBIOTIC PROPHYLAXIS
     Dosage: 2 GRAM
     Route: 061
     Dates: start: 20180206, end: 20180216
  20. DILATREND [Concomitant]
     Active Substance: CARVEDILOL
     Dosage: 25 MILLIGRAM
     Route: 048
     Dates: start: 20180203
  21. ALLOPURINOL. [Concomitant]
     Active Substance: ALLOPURINOL
     Indication: PROPHYLAXIS
     Dosage: 300 MILLIGRAM
     Route: 048
     Dates: start: 20180104
  22. VENETOCLAX. [Concomitant]
     Active Substance: VENETOCLAX
     Dosage: 200 MILLIGRAM
     Route: 048
     Dates: start: 20171027, end: 20171121
  23. VENETOCLAX. [Concomitant]
     Active Substance: VENETOCLAX
     Dosage: 200 MILLIGRAM
     Route: 048
     Dates: start: 20171122, end: 20171214
  24. DAFLON [Concomitant]
     Indication: VEIN DISORDER
     Dosage: 500 MILLIGRAM
     Route: 048
     Dates: start: 2007
  25. BETAHISTIN [Concomitant]
     Active Substance: BETAHISTINE
     Indication: DIZZINESS
     Dosage: 12 MILLIGRAM
     Route: 048
     Dates: start: 2016
  26. GLICLAZID [Concomitant]
     Route: 048
     Dates: start: 20180128, end: 20180128
  27. SPIRIVA [Concomitant]
     Active Substance: TIOTROPIUM BROMIDE MONOHYDRATE
     Indication: ASTHMA
     Dosage: 18 MICROGRAM
     Route: 055
     Dates: start: 2007
  28. AZACITIDINE. [Suspect]
     Active Substance: AZACITIDINE
     Indication: ACUTE MYELOID LEUKAEMIA
     Dosage: 75 MILLIGRAM/SQ. METER
     Route: 058
     Dates: start: 20171025
  29. GLICLAZID [Concomitant]
     Indication: TYPE 2 DIABETES MELLITUS
     Dosage: 90 MILLIGRAM
     Route: 048
     Dates: start: 2013, end: 20180126
  30. DEXPANTHENOL. [Concomitant]
     Active Substance: DEXPANTHENOL
     Indication: INFECTION PROPHYLAXIS
     Route: 061
     Dates: start: 20171011
  31. ELO-MEL [Concomitant]
     Active Substance: CALCIUM CHLORIDE\MAGNESIUM CHLORIDE\POTASSIUM CHLORIDE\SODIUM ACETATE\SODIUM CHLORIDE
     Indication: PROPHYLAXIS
     Route: 041
     Dates: start: 20180124, end: 20180207
  32. FOLSAN [Concomitant]
     Active Substance: FOLIC ACID
     Indication: FOLATE DEFICIENCY
     Dosage: 5 MILLIGRAM
     Route: 048
     Dates: start: 20171012
  33. AMPHO MORONAL [Concomitant]
     Active Substance: AMPHOTERICIN B
     Indication: INFECTION PROPHYLAXIS
     Route: 048
     Dates: start: 20171011
  34. OCTENISEPT [Concomitant]
     Active Substance: OCTENIDINE\PHENOXYETHANOL
     Indication: ANAL ABSCESS
     Dosage: 7.5 MILLIGRAM
     Route: 061
     Dates: start: 20180202
  35. DIBONDRIN [Concomitant]
     Active Substance: DIPHENHYDRAMINE HYDROCHLORIDE
     Indication: SLEEP DISORDER
     Route: 048
     Dates: start: 20171101

REACTIONS (2)
  - Acute erythroid leukaemia [Not Recovered/Not Resolved]
  - Staphylococcal sepsis [Recovered/Resolved]

NARRATIVE: CASE EVENT DATE: 20180124
